FAERS Safety Report 24283237 (Version 1)
Quarter: 2024Q3

REPORT INFORMATION
  Report Type: Spontaneous
  Country: US (occurrence: None)
  Receive Date: 20240903
  Receipt Date: 20240903
  Transmission Date: 20241017
  Serious: Yes (Hospitalization)
  Sender: Public
  Company Number: None

PATIENT
  Age: 45 Year
  Sex: Male
  Weight: 85.95 kg

DRUGS (2)
  1. CAPECITABINE [Suspect]
     Active Substance: CAPECITABINE
     Indication: Colon cancer
     Dates: start: 20240812, end: 20240826
  2. OXALIPLATIN [Suspect]
     Active Substance: OXALIPLATIN
     Indication: Colon cancer
     Dosage: OTHER FREQUENCY : ONCE EVERY 21 DAY?
     Route: 041
     Dates: start: 20240812

REACTIONS (10)
  - Diarrhoea [None]
  - Vomiting [None]
  - Dehydration [None]
  - Stomatitis [None]
  - Taste disorder [None]
  - Fatigue [None]
  - Asthenia [None]
  - Palmar-plantar erythrodysaesthesia syndrome [None]
  - Pneumonia [None]
  - Blood bilirubin increased [None]

NARRATIVE: CASE EVENT DATE: 20240903
